FAERS Safety Report 8786466 (Version 2)
Quarter: 2012Q4

REPORT INFORMATION
  Report Type: Spontaneous
  Country: BG (occurrence: None)
  Receive Date: 20120905
  Receipt Date: 20121010
  Transmission Date: 20130627
  Serious: Yes (Hospitalization, Other)
  Sender: FDA-Public Use
  Company Number: AUR-APL-2012-03756

PATIENT
  Age: 39 Year
  Sex: Male

DRUGS (2)
  1. FLUCONAZOLE [Suspect]
     Indication: ENDOCARDITIS
     Dosage: 1 d
  2. AMPHOTERICIN B ( AMPHOTERICIN B ) [Suspect]
     Indication: DRUG USE FOR UNKNOWN INDICATION

REACTIONS (8)
  - Drug resistance [None]
  - Candida test positive [None]
  - Haemodynamic instability [None]
  - Loss of consciousness [None]
  - Pain in extremity [None]
  - Anaemia [None]
  - Urinary nitrogen increased [None]
  - Drug intolerance [None]
